FAERS Safety Report 4985764-0 (Version None)
Quarter: 2006Q2

REPORT INFORMATION
  Report Type: 
  Country: None (occurrence: None)
  Receive Date: 20060421
  Receipt Date: 20060411
  Transmission Date: 20061013
  Serious: Yes (Other)
  Sender: FDA-Public Use
  Company Number: 2006050279

PATIENT
  Age: 46 Year
  Sex: Female

DRUGS (2)
  1. CLINDAMYCIN HCL [Suspect]
     Indication: ORAL INFECTION
     Dosage: 600 MG (300 MG, 2 IN 1 D), ORAL
     Route: 048
     Dates: start: 20041101, end: 20050101
  2. KETOROLAC TROMETHAMINE [Concomitant]

REACTIONS (6)
  - ARTHRALGIA [None]
  - DIABETES MELLITUS NON-INSULIN-DEPENDENT [None]
  - DIABETIC NEUROPATHY [None]
  - LIMB DISCOMFORT [None]
  - MYALGIA [None]
  - PARAESTHESIA [None]
